FAERS Safety Report 7238647-X (Version None)
Quarter: 2011Q1

REPORT INFORMATION
  Report Type: 
  Country: None (occurrence: None)
  Receive Date: 20110121
  Receipt Date: 20110110
  Transmission Date: 20110831
  Serious: No
  Sender: FDA-Public Use
  Company Number: US-B.I. PHARMACEUTICALS,INC./RIDGEFIELD-2011-BP-01042BP

PATIENT
  Sex: Male

DRUGS (8)
  1. GLUCOSAMINE SOLUTION [Concomitant]
     Indication: PROPHYLAXIS
  2. PRADAXA [Suspect]
     Indication: ATRIAL FIBRILLATION
     Dosage: 300 MG
     Route: 048
     Dates: start: 20110102
  3. ASA [Concomitant]
     Indication: PROPHYLAXIS
  4. FISH OIL [Concomitant]
     Indication: PROPHYLAXIS
  5. MULTIVITAMIN [Concomitant]
     Indication: PROPHYLAXIS
  6. NIACIN [Concomitant]
     Indication: BLOOD CHOLESTEROL INCREASED
  7. CRESTOR [Concomitant]
     Indication: BLOOD CHOLESTEROL INCREASED
  8. MULTAQ [Concomitant]
     Indication: ATRIAL FIBRILLATION

REACTIONS (2)
  - MUSCLE RUPTURE [None]
  - CONTUSION [None]
